FAERS Safety Report 20973878 (Version 1)
Quarter: 2022Q2

REPORT INFORMATION
  Report Type: Spontaneous
  Country: AR (occurrence: AR)
  Receive Date: 20220617
  Receipt Date: 20220617
  Transmission Date: 20220721
  Serious: No
  Sender: FDA-Public Use
  Company Number: AR-PFIZER INC-202200783560

PATIENT
  Age: 13 Year
  Sex: Male

DRUGS (1)
  1. GENOTROPIN [Suspect]
     Active Substance: SOMATROPIN
     Indication: Foetal growth restriction
     Dosage: 1 TO 1.4MG (7 PER WEEK)
     Dates: start: 20220524

REACTIONS (3)
  - Wrong technique in device usage process [Not Recovered/Not Resolved]
  - Device leakage [Not Recovered/Not Resolved]
  - Medical device site laceration [Not Recovered/Not Resolved]

NARRATIVE: CASE EVENT DATE: 20220501
